FAERS Safety Report 7323336-3 (Version None)
Quarter: 2011Q1

REPORT INFORMATION
  Report Type: 
  Country: None (occurrence: None)
  Receive Date: 20110217
  Receipt Date: 20110201
  Transmission Date: 20110831
  Serious: Yes (Death, Hospitalization)
  Sender: FDA-Public Use
  Company Number: FK201100113

PATIENT
  Age: 20 Year
  Sex: Female

DRUGS (10)
  1. BUSULFAN [Suspect]
     Indication: CENTRAL NERVOUS SYSTEM LYMPHOMA
  2. METHOTREXATE [Suspect]
     Indication: CENTRAL NERVOUS SYSTEM LYMPHOMA
  3. RITUXIMAB (RITUXIMAB) (RITUXIMAB) [Suspect]
     Indication: CENTRAL NERVOUS SYSTEM LYMPHOMA
  4. THIOTEPA [Suspect]
     Indication: CENTRAL NERVOUS SYSTEM LYMPHOMA
  5. PROCARBAZNIE (PROCARBAZINE) (PROCARBAZINE) [Suspect]
     Indication: CENTRAL NERVOUS SYSTEM LYMPHOMA
  6. VINCRISTINE [Suspect]
     Indication: CENTRAL NERVOUS SYSTEM LYMPHOMA
  7. CYTARABINE [Suspect]
     Indication: CENTRAL NERVOUS SYSTEM LYMPHOMA
  8. ETOPOSIDE [Suspect]
     Indication: CENTRAL NERVOUS SYSTEM LYMPHOMA
  9. CYCLOPHOSPHAMIDE [Suspect]
     Indication: CENTRAL NERVOUS SYSTEM LYMPHOMA
  10. MYCOPHENOLATE MOFETIL [Suspect]
     Indication: LUPUS NEPHRITIS

REACTIONS (12)
  - FUNGAEMIA [None]
  - STATUS EPILEPTICUS [None]
  - FEBRILE NEUTROPENIA [None]
  - HUMAN POLYOMAVIRUS INFECTION [None]
  - STEVENS-JOHNSON SYNDROME [None]
  - CENTRAL NERVOUS SYSTEM LYMPHOMA [None]
  - STEM CELL TRANSPLANT [None]
  - HAEMATURIA [None]
  - HYPERTENSION [None]
  - LYMPHOMA [None]
  - POSTERIOR REVERSIBLE ENCEPHALOPATHY SYNDROME [None]
  - SEPSIS [None]
